FAERS Safety Report 11127360 (Version 1)
Quarter: 2015Q2

REPORT INFORMATION
  Report Type: Spontaneous
  Country: BR (occurrence: BR)
  Receive Date: 20150521
  Receipt Date: 20150521
  Transmission Date: 20150821
  Serious: Yes (Other)
  Sender: FDA-Public Use
  Company Number: BR-ASTRAZENECA-2015SE45369

PATIENT
  Age: 28 Year
  Sex: Female
  Weight: 89 kg

DRUGS (5)
  1. GLIFAGE [Suspect]
     Active Substance: METFORMIN HYDROCHLORIDE
     Indication: POLYCYSTIC OVARIES
     Dosage: NON-AZ PRODUCT; AT NIGHT
     Route: 048
     Dates: start: 2013
  2. ATACAND [Suspect]
     Active Substance: CANDESARTAN CILEXETIL
     Indication: HYPERTENSION
     Route: 048
     Dates: start: 2014, end: 201505
  3. OMEPRAZOLE. [Suspect]
     Active Substance: OMEPRAZOLE
     Indication: GASTRITIS
     Dosage: IN FASTING STATE; EVERY MORNING
     Route: 048
     Dates: start: 2013
  4. RIVOTRIL DROPS [Concomitant]
     Indication: ANXIETY
     Dosage: AT NIGHT
     Route: 048
  5. GLIFAGE [Suspect]
     Active Substance: METFORMIN HYDROCHLORIDE
     Indication: INSULIN RESISTANCE
     Dosage: NON-AZ PRODUCT; AT NIGHT
     Route: 048
     Dates: start: 2013

REACTIONS (4)
  - Nausea [Unknown]
  - Heart rate increased [Unknown]
  - Drug ineffective [Unknown]
  - Hypertension [Recovered/Resolved]

NARRATIVE: CASE EVENT DATE: 2014
